FAERS Safety Report 26044235 (Version 1)
Quarter: 2025Q4

REPORT INFORMATION
  Report Type: Spontaneous
  Country: US (occurrence: US)
  Receive Date: 20251114
  Receipt Date: 20251114
  Transmission Date: 20260118
  Serious: Yes (Hospitalization, Other)
  Sender: QILU PHARMACEUTICAL (HAINAN) CO., LTD.
  Company Number: US-QILU PHARMACEUTICAL (HAINAN) CO.  LTD.-QLH-000354-2025

PATIENT
  Age: 22 Year
  Sex: Female

DRUGS (4)
  1. TADALAFIL [Suspect]
     Active Substance: TADALAFIL
     Indication: Product used for unknown indication
     Dosage: 200 TABLETS, INCLUDING UNKNOWN AMOUNTS OF TADALAFIL 10 MG
     Route: 065
  2. FELODIPINE [Suspect]
     Active Substance: FELODIPINE
     Indication: Product used for unknown indication
     Dosage: 200 TABLETS, INCLUDING UNKNOWN AMOUNTS OF FELODIPINE 10 MG
     Route: 065
  3. LISINOPRIL [Suspect]
     Active Substance: LISINOPRIL
     Indication: Product used for unknown indication
     Dosage: 200 TABLETS, INCLUDING UNKNOWN AMOUNTS OF LISINOPRIL 20 MG
     Route: 065
  4. ALCOHOL [Suspect]
     Active Substance: ALCOHOL
     Indication: Product used for unknown indication
     Dosage: UNK
     Route: 065

REACTIONS (3)
  - Vasoplegia syndrome [Recovered/Resolved]
  - Intentional overdose [Recovered/Resolved]
  - Labelled drug-alcohol interaction medication error [Unknown]
